FAERS Safety Report 13187020 (Version 1)
Quarter: 2017Q1

REPORT INFORMATION
  Report Type: Spontaneous
  Country: CA (occurrence: CA)
  Receive Date: 20170206
  Receipt Date: 20170206
  Transmission Date: 20170428
  Serious: Yes (Other)
  Sender: FDA-Public Use
  Company Number: CA-TEVA-736057ACC

PATIENT
  Age: 52 Year
  Sex: Female
  Weight: 57.66 kg

DRUGS (3)
  1. ESTROGEL [Concomitant]
     Active Substance: ESTRADIOL
  2. VITAMIN B12 [Concomitant]
     Active Substance: CYANOCOBALAMIN
  3. TEVA-LEVOFLOXACIN [Suspect]
     Active Substance: LEVOFLOXACIN
     Indication: BRONCHITIS
     Dosage: .1 DOSAGE FORMS DAILY;
     Route: 065

REACTIONS (2)
  - Anxiety [Unknown]
  - Hypoaesthesia [Unknown]
